FAERS Safety Report 5803125-9 (Version None)
Quarter: 2008Q3

REPORT INFORMATION
  Report Type: 
  Country: None (occurrence: None)
  Receive Date: 20080708
  Receipt Date: 20080701
  Transmission Date: 20090109
  Serious: Yes (Life-Threatening)
  Sender: FDA-Public Use
  Company Number: JP-MERCK-0806USA02618

PATIENT
  Age: 62 Year
  Sex: Male

DRUGS (3)
  1. LOCHOL [Concomitant]
     Indication: HYPERCHOLESTEROLAEMIA
     Route: 048
     Dates: start: 20061226
  2. ASPIRIN [Concomitant]
     Indication: STENT PLACEMENT
     Route: 048
     Dates: start: 20061226
  3. HYZAAR [Suspect]
     Indication: HYPERTENSION
     Route: 048
     Dates: start: 20080112, end: 20080610

REACTIONS (3)
  - ARRHYTHMIA [None]
  - UPPER RESPIRATORY TRACT INFLAMMATION [None]
  - VENTRICULAR EXTRASYSTOLES [None]
